FAERS Safety Report 9449332 (Version 2)
Quarter: 2013Q4

REPORT INFORMATION
  Report Type: Spontaneous
  Country: FR (occurrence: JP)
  Receive Date: 20130808
  Receipt Date: 20131030
  Transmission Date: 20140711
  Serious: No
  Sender: FDA-Public Use
  Company Number: JP-FRI-1000047533

PATIENT
  Age: 27 Year
  Sex: Female
  Weight: 60 kg

DRUGS (4)
  1. ACAMPROSATE [Suspect]
     Indication: ALCOHOLISM
     Dosage: 999 MG
     Route: 048
     Dates: start: 20130709
  2. ACAMPROSATE [Suspect]
     Indication: ALCOHOLISM
     Dosage: 1998 MG
     Route: 048
     Dates: end: 20130725
  3. CERCINE [Concomitant]
     Indication: INSOMNIA
     Dates: start: 20130702, end: 20131001
  4. VEGETAMIN A [Concomitant]
     Dates: start: 20130702, end: 20131001

REACTIONS (1)
  - Drug eruption [Recovered/Resolved]
